FAERS Safety Report 10537570 (Version 1)
Quarter: 2014Q4

REPORT INFORMATION
  Report Type: Spontaneous
  Country: US (occurrence: None)
  Receive Date: 20141022
  Receipt Date: 20141022
  Transmission Date: 20150529
  Serious: Yes (Life-Threatening)
  Sender: FDA-Public Use
  Company Number: None

PATIENT
  Age: 65 Year
  Sex: Female
  Weight: 92 kg

DRUGS (1)
  1. DAPTOMYCIN. [Suspect]
     Active Substance: DAPTOMYCIN
     Indication: ARTHRITIS INFECTIVE
     Route: 042

REACTIONS (3)
  - Eosinophilic pneumonia [None]
  - Respiratory distress [None]
  - Acute respiratory distress syndrome [None]

NARRATIVE: CASE EVENT DATE: 20141007
